FAERS Safety Report 7610980-9 (Version None)
Quarter: 2011Q3

REPORT INFORMATION
  Report Type: 
  Country: None (occurrence: None)
  Receive Date: 20110715
  Receipt Date: 20110711
  Transmission Date: 20111222
  Serious: Yes (Death, Hospitalization, Other)
  Sender: FDA-Public Use
  Company Number: FR-PFIZER INC-2011155610

PATIENT
  Age: 64 Year
  Sex: Male

DRUGS (14)
  1. ONDANSERTRON HYDROCHLORIDE [Suspect]
     Indication: PROPHYLAXIS OF NAUSEA AND VOMITING
     Dosage: 8 MG, 2X/DAY
     Route: 048
     Dates: start: 20110426, end: 20110501
  2. PREVISCAN [Concomitant]
     Dosage: 20 MG, 1X/DAY
     Route: 048
     Dates: end: 20110505
  3. PREDNISOLONE [Suspect]
     Indication: PROPHYLAXIS
     Dosage: 20 MG, 3X/DAY
     Route: 048
     Dates: start: 20110426, end: 20110427
  4. ATORVASTATIN CALCIUM [Concomitant]
     Indication: ISCHAEMIC CARDIOMYOPATHY
     Dosage: 1 DF, 1X/DAY, LONG TERM
     Route: 048
     Dates: end: 20110524
  5. TRANDOLAPRIL [Concomitant]
     Indication: ISCHAEMIC CARDIOMYOPATHY
     Dosage: 1 DF, 1X/DAY
     Route: 048
     Dates: end: 20110505
  6. BISOPROLOL FUMARATE [Concomitant]
     Indication: ISCHAEMIC CARDIOMYOPATHY
     Dosage: 1 DF, 1X/DAY, LONG TERM
     Route: 048
     Dates: end: 20110505
  7. SOLU-MEDROL [Suspect]
     Indication: PREMEDICATION
     Dosage: 120 MG, UNK
     Route: 042
     Dates: start: 20110426, end: 20110426
  8. FOLIC ACID [Suspect]
     Indication: VITAMIN SUPPLEMENTATION
     Dosage: 1 DF, 1X/DAY
     Route: 048
     Dates: start: 20110419, end: 20110511
  9. DODECAVIT [Concomitant]
     Indication: VITAMIN SUPPLEMENTATION
     Dosage: 0.5 MG, UNK
     Route: 030
     Dates: start: 20110420, end: 20110420
  10. XANAX [Suspect]
     Indication: ANXIETY
     Dosage: 1 DF, 1X/DAY
     Route: 048
     Dates: start: 20110426, end: 20110507
  11. CARBOPLATIN [Suspect]
     Dosage: 385 MG, UNK
     Route: 042
     Dates: start: 20110428, end: 20110428
  12. ASPIRIN [Concomitant]
     Indication: ISCHAEMIC CARDIOMYOPATHY
     Dosage: 75 MG, 1X/DAY, LONG TERM
     Route: 048
     Dates: end: 20110505
  13. ALIMTA [Suspect]
     Indication: BRONCHIAL CARCINOMA
     Dosage: 980 MG, UNK
     Route: 042
     Dates: start: 20110428, end: 20110428
  14. LASIX [Concomitant]
     Indication: ISCHAEMIC CARDIOMYOPATHY
     Dosage: 40 MG, 1X/DAY, LONG TERM
     Route: 048
     Dates: end: 20110524

REACTIONS (19)
  - ASCITES [None]
  - ANURIA [None]
  - PANCYTOPENIA [None]
  - GASTROINTESTINAL NECROSIS [None]
  - BLOOD CREATININE INCREASED [None]
  - OCULAR ICTERUS [None]
  - APPENDICITIS [None]
  - GAMMA-GLUTAMYLTRANSFERASE INCREASED [None]
  - PERITONEAL CANDIDIASIS [None]
  - ESCHERICHIA URINARY TRACT INFECTION [None]
  - BLOOD PRESSURE DECREASED [None]
  - COLITIS ISCHAEMIC [None]
  - DIARRHOEA [None]
  - HYPERKALAEMIA [None]
  - HEPATORENAL SYNDROME [None]
  - LUNG DISORDER [None]
  - ABDOMINAL PAIN [None]
  - DEHYDRATION [None]
  - NECROTISING COLITIS [None]
